FAERS Safety Report 15565634 (Version 2)
Quarter: 2019Q1

REPORT INFORMATION
  Report Type: Report from Study
  Country: FR (occurrence: FR)
  Receive Date: 20181030
  Receipt Date: 20190117
  Transmission Date: 20190417
  Serious: Yes (Other)
  Sender: FDA-Public Use
  Company Number: FR-ROCHE-2202963

PATIENT
  Age: 76 Year
  Sex: Male
  Weight: 85 kg

DRUGS (2)
  1. PIRFENIDONE. [Suspect]
     Active Substance: PIRFENIDONE
     Indication: INTERSTITIAL LUNG DISEASE
     Route: 048
     Dates: start: 20180413
  2. PIRFENIDONE. [Suspect]
     Active Substance: PIRFENIDONE
     Indication: PULMONARY FIBROSIS

REACTIONS (1)
  - Basal cell carcinoma [Recovered/Resolved]

NARRATIVE: CASE EVENT DATE: 20180821
